FAERS Safety Report 9109392 (Version 1)
Quarter: 2013Q1

REPORT INFORMATION
  Report Type: Spontaneous
  Country: US (occurrence: US)
  Receive Date: 20130222
  Receipt Date: 20130222
  Transmission Date: 20140127
  Serious: Yes (Other)
  Sender: FDA-Public Use
  Company Number: PHEH2013US004270

PATIENT
  Sex: Female

DRUGS (4)
  1. TASIGNA [Suspect]
     Dosage: 150 MG, BID
     Route: 048
  2. DIOVAN [Concomitant]
  3. LEVOTHYROXINE [Concomitant]
  4. METFORMIN [Concomitant]

REACTIONS (2)
  - Diabetes mellitus [Unknown]
  - Hypertension [Recovered/Resolved]
